FAERS Safety Report 13636791 (Version 1)
Quarter: 2017Q2

REPORT INFORMATION
  Report Type: Spontaneous
  Country: US (occurrence: US)
  Receive Date: 20170531
  Receipt Date: 20170531
  Transmission Date: 20170830
  Serious: No
  Sender: FDA-Public Use
  Company Number: US-ASTELLAS-1851655

PATIENT
  Sex: Female
  Weight: 38.59 kg

DRUGS (1)
  1. TARCEVA [Suspect]
     Active Substance: ERLOTINIB HYDROCHLORIDE
     Indication: PRODUCT USED FOR UNKNOWN INDICATION
     Route: 048
     Dates: start: 20160703

REACTIONS (5)
  - Stomatitis [Unknown]
  - Diarrhoea [Unknown]
  - Tongue ulceration [Unknown]
  - Weight decreased [Unknown]
  - Nausea [Unknown]
